FAERS Safety Report 24633963 (Version 1)
Quarter: 2024Q4

REPORT INFORMATION
  Report Type: Report from Study
  Country: US (occurrence: US)
  Receive Date: 20241118
  Receipt Date: 20241118
  Transmission Date: 20250114
  Serious: No
  Sender: SUNOVION
  Company Number: US-SUMITOMO PHARMA SWITZERLAND GMBH-2024SPA003888

PATIENT

DRUGS (2)
  1. ORGOVYX [Suspect]
     Active Substance: RELUGOLIX
     Indication: Prostate cancer
     Dosage: 120 MG, QD
     Route: 048
     Dates: start: 20240408
  2. ORGOVYX [Suspect]
     Active Substance: RELUGOLIX
     Dosage: UNK (4 TIMES A WEEK)
     Route: 048

REACTIONS (4)
  - Hot flush [Unknown]
  - Insomnia [Unknown]
  - Bone pain [Unknown]
  - Inappropriate schedule of product administration [Unknown]
